FAERS Safety Report 11444499 (Version 1)
Quarter: 2015Q3

REPORT INFORMATION
  Report Type: Report from Study
  Country: US (occurrence: US)
  Receive Date: 20150902
  Receipt Date: 20150902
  Transmission Date: 20151125
  Serious: No
  Sender: FDA-Public Use
  Company Number: US-ALEXION-A201503302

PATIENT

DRUGS (1)
  1. SOLIRIS [Suspect]
     Active Substance: ECULIZUMAB
     Indication: HAEMOLYTIC URAEMIC SYNDROME
     Route: 042

REACTIONS (7)
  - Headache [Unknown]
  - Weight fluctuation [Unknown]
  - Abdominal discomfort [Unknown]
  - Oedema [Unknown]
  - Fatigue [Unknown]
  - Sinus congestion [Recovering/Resolving]
  - Sinusitis [Recovering/Resolving]
